FAERS Safety Report 7995940-0 (Version None)
Quarter: 2011Q4

REPORT INFORMATION
  Report Type: 
  Country: None (occurrence: None)
  Receive Date: 20111220
  Receipt Date: 20111214
  Transmission Date: 20120403
  Serious: Yes (Death, Hospitalization, Other)
  Sender: FDA-Public Use
  Company Number: US-BAXTER-2011BH036296

PATIENT
  Sex: Female

DRUGS (1)
  1. DIANEAL [Suspect]
     Indication: PERITONEAL DIALYSIS
     Route: 033
     Dates: start: 20101201, end: 20110101

REACTIONS (8)
  - FUNGAL PERITONITIS [None]
  - SYNCOPE [None]
  - BREAST CANCER [None]
  - FALL [None]
  - PERITONEAL DIALYSIS COMPLICATION [None]
  - HEAD INJURY [None]
  - SEPSIS [None]
  - SUBDURAL HAEMATOMA [None]
